FAERS Safety Report 17103609 (Version 4)
Quarter: 2020Q1

REPORT INFORMATION
  Report Type: Spontaneous
  Country: CN (occurrence: CN)
  Receive Date: 20191203
  Receipt Date: 20200311
  Transmission Date: 20200409
  Serious: Yes (Death, Hospitalization)
  Sender: FDA-Public Use
  Company Number: CN-JIANGSU HENGRUI MEDICINE CO., LTD.-2077406

PATIENT
  Age: 69 Year
  Sex: Male
  Weight: 86 kg

DRUGS (3)
  1. ASPIRIN ENTERIC-COATED TABLETS [Concomitant]
     Active Substance: ASPIRIN
     Route: 048
     Dates: start: 20191116, end: 20191122
  2. FONDAPARINUX SODIUM. [Suspect]
     Active Substance: FONDAPARINUX SODIUM
     Indication: ANGINA UNSTABLE
     Route: 058
     Dates: start: 20191119, end: 20191122
  3. TICAGRELOR TABLETS [Concomitant]
     Active Substance: TICAGRELOR
     Route: 048
     Dates: start: 20191116, end: 20191122

REACTIONS (1)
  - Haemorrhage intracranial [Fatal]

NARRATIVE: CASE EVENT DATE: 20191122
